FAERS Safety Report 6789509-3 (Version None)
Quarter: 2010Q2

REPORT INFORMATION
  Report Type: 
  Country: None (occurrence: None)
  Receive Date: 20100624
  Receipt Date: 20100615
  Transmission Date: 20101027
  Serious: Yes (Hospitalization)
  Sender: FDA-Public Use
  Company Number: DE-BIOGENIDEC-2010BI020171

PATIENT
  Age: 36 Year
  Sex: Female

DRUGS (4)
  1. TYSABRI [Suspect]
     Indication: MULTIPLE SCLEROSIS
     Route: 042
     Dates: start: 20070625
  2. DIOVAN [Concomitant]
     Dates: start: 20070501
  3. CARMEN [Concomitant]
     Dates: start: 20070501
  4. METOPROLOL TARTRATE [Concomitant]
     Dates: start: 20070501

REACTIONS (1)
  - CHOLECYSTECTOMY [None]
